FAERS Safety Report 6473971-X (Version None)
Quarter: 2009Q4

REPORT INFORMATION
  Report Type: 
  Country: None (occurrence: None)
  Receive Date: 20091204
  Receipt Date: 20091201
  Transmission Date: 20100525
  Serious: Yes (Hospitalization, Other)
  Sender: FDA-Public Use
  Company Number: US-BAYER-200941591NA

PATIENT
  Age: 44 Year
  Sex: Female
  Weight: 109 kg

DRUGS (5)
  1. YAZ [Suspect]
     Indication: DRUG USE FOR UNKNOWN INDICATION
     Dates: start: 20080101
  2. METROGEL [Concomitant]
  3. ORENCIA [Concomitant]
  4. CALCIUM [Concomitant]
  5. ADVIL [Concomitant]

REACTIONS (2)
  - OVARIAN CYSTECTOMY [None]
  - THROMBOSIS [None]
